FAERS Safety Report 8843056 (Version 1)
Quarter: 2012Q4

REPORT INFORMATION
  Report Type: 
  Country: DE (occurrence: DE)
  Receive Date: 20121016
  Receipt Date: 20121016
  Transmission Date: 20130627
  Serious: Yes (Other)
  Sender: FDA-Public Use
  Company Number: DE-GLAXOSMITHKLINE-D0076348A

PATIENT
  Age: 65 None
  Sex: Female

DRUGS (6)
  1. VIANI FORTE [Suspect]
     Route: 055
     Dates: end: 201204
  2. VIANI [Suspect]
     Route: 055
     Dates: start: 201204, end: 201208
  3. VIANI FORTE [Suspect]
     Route: 055
     Dates: start: 201208
  4. AVAMYS [Suspect]
     Route: 045
     Dates: start: 20120828
  5. L THYROXIN [Concomitant]
     Route: 065
  6. SPIRIVA [Concomitant]
     Route: 065

REACTIONS (10)
  - Deafness [Unknown]
  - Dysphonia [Recovering/Resolving]
  - Nasal congestion [Unknown]
  - Muscle spasms [Recovering/Resolving]
  - Haematoma [Recovering/Resolving]
  - Weight increased [Recovering/Resolving]
  - Injury [Recovering/Resolving]
  - Headache [Recovering/Resolving]
  - Ear pain [Unknown]
  - Condition aggravated [Unknown]
